FAERS Safety Report 4864796-7 (Version None)
Quarter: 2005Q4

REPORT INFORMATION
  Report Type: 
  Country: None (occurrence: None)
  Receive Date: 20051222
  Receipt Date: 20051005
  Transmission Date: 20060501
  Serious: Yes (Hospitalization)
  Sender: FDA-Public Use
  Company Number: US-MERCK-0510USA05232

PATIENT
  Age: 78 Year
  Sex: Female
  Weight: 75 kg

DRUGS (17)
  1. VIOXX [Suspect]
     Indication: ARTHRITIS
     Route: 048
     Dates: start: 19990816, end: 20020501
  2. VIOXX [Suspect]
     Route: 048
     Dates: start: 19990816, end: 20020501
  3. THYROID TABLETS USP [Concomitant]
     Route: 065
  4. LOTREL [Concomitant]
     Route: 065
  5. PAXIL [Concomitant]
     Route: 065
  6. NEXIUM [Concomitant]
     Route: 065
  7. ECOTRIN [Concomitant]
     Route: 065
  8. POTASSIUM CHLORIDE [Concomitant]
     Route: 065
  9. NITROGLYCERIN [Concomitant]
     Route: 060
  10. LOMOTIL [Concomitant]
     Route: 065
  11. ALPRAZOLAM [Concomitant]
     Route: 065
  12. ALDACTONE [Concomitant]
     Route: 065
  13. LASIX [Concomitant]
     Route: 065
  14. MECLIZINE [Concomitant]
     Route: 065
  15. DARVOCET-N 100 [Concomitant]
     Route: 065
  16. METAMUCIL [Concomitant]
     Route: 065
  17. METAMUCIL [Concomitant]
     Route: 065

REACTIONS (12)
  - ATRIOVENTRICULAR BLOCK COMPLETE [None]
  - BRADYCARDIA [None]
  - CARDIAC DISORDER [None]
  - CARDIAC FAILURE CONGESTIVE [None]
  - CARPAL TUNNEL SYNDROME [None]
  - CHEST PAIN [None]
  - GASTRITIS [None]
  - HOSPITALISATION [None]
  - HYPERKALAEMIA [None]
  - JOINT INJURY [None]
  - MYOCARDIAL INFARCTION [None]
  - ROTATOR CUFF SYNDROME [None]
